FAERS Safety Report 13353733 (Version 1)
Quarter: 2017Q1

REPORT INFORMATION
  Report Type: Spontaneous
  Country: US (occurrence: US)
  Receive Date: 20170320
  Receipt Date: 20170320
  Transmission Date: 20170429
  Serious: Yes (Hospitalization)
  Sender: FDA-Public Use
  Company Number: None

PATIENT
  Age: 2 Year
  Sex: Male

DRUGS (4)
  1. MIRALAX [Suspect]
     Active Substance: POLYETHYLENE GLYCOL 3350
     Indication: CONSTIPATION
     Route: 048
  2. RISPERDAL [Concomitant]
     Active Substance: RISPERIDONE
  3. MIRALAX [Suspect]
     Active Substance: POLYETHYLENE GLYCOL 3350
     Indication: PAIN
     Route: 048
  4. CENTRUM CHEWABLES [Concomitant]

REACTIONS (5)
  - Hallucination, auditory [None]
  - Psychotic disorder [None]
  - Mood swings [None]
  - Suicidal ideation [None]
  - Hallucination, visual [None]

NARRATIVE: CASE EVENT DATE: 20060301
